FAERS Safety Report 8665997 (Version 2)
Quarter: 2013Q1

REPORT INFORMATION
  Report Type: Spontaneous
  Country: SE (occurrence: SE)
  Receive Date: 20120716
  Receipt Date: 20130111
  Transmission Date: 20140127
  Serious: Yes (Life-Threatening, Hospitalization, Other)
  Sender: FDA-Public Use
  Company Number: SE-PFIZER INC-2012167365

PATIENT
  Age: 28 Year
  Sex: Female

DRUGS (1)
  1. CYTOTEC [Suspect]
     Indication: ABORTION INDUCED
     Dosage: 0.8 MG, SINGLE
     Route: 048
     Dates: start: 20120218, end: 20120218

REACTIONS (3)
  - Duodenal ulcer perforation [Recovered/Resolved]
  - Abortion [Unknown]
  - Off label use [Recovered/Resolved]
